FAERS Safety Report 9928060 (Version 1)
Quarter: 2014Q1

REPORT INFORMATION
  Report Type: Spontaneous
  Country: US (occurrence: None)
  Receive Date: 20140224
  Receipt Date: 20140224
  Transmission Date: 20141002
  Serious: Yes (Hospitalization)
  Sender: FDA-Public Use
  Company Number: ALLO20140003

PATIENT
  Age: 72 Year
  Sex: Male

DRUGS (12)
  1. ALLOPURINOL [Suspect]
     Indication: PRODUCT USED FOR UNKNOWN INDICATION
     Route: 048
  2. FUROSEMIDE [Suspect]
     Indication: PRODUCT USED FOR UNKNOWN INDICATION
     Dosage: 7.1429 MG, 25 MG TWICE WEEKLY, ORAL
  3. RANOLAZINE [Suspect]
     Indication: ANGINA UNSTABLE
     Route: 048
     Dates: start: 201107, end: 2012
  4. ATORVASTATIN(ATORVASTATIN)(40 MILLIGRAM, TABLETS)(ATORVASTATIN) [Concomitant]
  5. VALSARTAN(VALSARTAN) [Concomitant]
  6. NITROGLYCERIN(GLYCERYL TRINITRATE)(10 MILLIGRAM, TRANSDERMAL PATCH)(GLYCERYL TRINITRATE) [Concomitant]
  7. BISOPROLOL(BISOPROLOL) [Concomitant]
  8. ETHYLIC ESTERS OF POLYUNSATURATED FATTY ACIDS(FATTY ACIDS NOS) [Concomitant]
  9. OMEPRAZOLE(OMEPRAZOLE) [Concomitant]
  10. ASPIRIN(ACETYLSALICYLIC ACID) [Concomitant]
  11. QUETIAPINE(QUETIAPINE) [Concomitant]
  12. SERTRALINE(SERTRALINE) [Concomitant]

REACTIONS (8)
  - Fall [None]
  - Nausea [None]
  - Vomiting [None]
  - Malaise [None]
  - Muscular weakness [None]
  - Rhabdomyolysis [None]
  - Drug interaction [None]
  - Gait disturbance [None]
